FAERS Safety Report 5996890-1 (Version None)
Quarter: 2008Q4

REPORT INFORMATION
  Report Type: 
  Country: None (occurrence: None)
  Receive Date: 20081212
  Receipt Date: 20081027
  Transmission Date: 20090506
  Serious: No
  Sender: FDA-Public Use
  Company Number: US-ABBOTT-08P-163-0484320-00

PATIENT
  Sex: Female
  Weight: 50.394 kg

DRUGS (5)
  1. HUMIRA [Suspect]
     Indication: PSORIATIC ARTHROPATHY
     Route: 058
     Dates: start: 20030101, end: 20030101
  2. ESOMEPRAZOLE MAGNESIUM [Concomitant]
     Indication: IRRITABLE BOWEL SYNDROME
     Route: 048
  3. HYOSCYAMINE SULFATE [Concomitant]
     Indication: IRRITABLE BOWEL SYNDROME
     Route: 048
  4. ATROPA BELLADONNA HERB [Concomitant]
     Indication: PAIN
     Route: 048
  5. ESTRADIOL [Concomitant]
     Indication: HORMONE REPLACEMENT THERAPY
     Route: 048

REACTIONS (1)
  - INJECTION SITE IRRITATION [None]
